FAERS Safety Report 17994221 (Version 2)
Quarter: 2020Q3

REPORT INFORMATION
  Report Type: Spontaneous
  Country: US (occurrence: US)
  Receive Date: 20200708
  Receipt Date: 20200724
  Transmission Date: 20201103
  Serious: No
  Sender: FDA-Public Use
  Company Number: US-TEVA-2020-US-1797104

PATIENT
  Sex: Female

DRUGS (1)
  1. BUPROPION HYDROCHLORIDE TEVA [Suspect]
     Active Substance: BUPROPION HYDROCHLORIDE
     Route: 065

REACTIONS (4)
  - Nausea [Recovered/Resolved]
  - Illness [Unknown]
  - Feeling abnormal [Unknown]
  - Headache [Recovered/Resolved]
